FAERS Safety Report 25690115 (Version 1)
Quarter: 2025Q3

REPORT INFORMATION
  Report Type: Report from Study
  Country: US (occurrence: US)
  Receive Date: 20250818
  Receipt Date: 20250818
  Transmission Date: 20251021
  Serious: Yes (Other)
  Sender: MYLAN
  Company Number: US-MYLANLABS-2025M1069499

PATIENT
  Age: 29 Year
  Sex: Female

DRUGS (1)
  1. METHOTREXATE [Suspect]
     Active Substance: METHOTREXATE
     Indication: Systemic lupus erythematosus
     Dosage: UNK, QW (ONCE PER WEEK FOR 4-5 MONTHS)

REACTIONS (3)
  - Nausea [Recovered/Resolved]
  - Alopecia [Recovered/Resolved]
  - Drug ineffective [Recovered/Resolved]
